FAERS Safety Report 6568455-4 (Version None)
Quarter: 2010Q1

REPORT INFORMATION
  Report Type: 
  Country: None (occurrence: None)
  Receive Date: 20100203
  Receipt Date: 20100201
  Transmission Date: 20100710
  Serious: Yes (Other)
  Sender: FDA-Public Use
  Company Number: A0842342A

PATIENT
  Age: 43 Year
  Sex: Female

DRUGS (6)
  1. ADVAIR DISKUS 100/50 [Suspect]
     Indication: ASTHMA
     Dosage: 2PUFF TWICE PER DAY
     Route: 055
     Dates: start: 20091001
  2. TOPROL-XL [Concomitant]
  3. SYNTHROID [Concomitant]
  4. TRAZODONE [Concomitant]
  5. WELLBUTRIN XL [Concomitant]
  6. LAMICTAL [Concomitant]

REACTIONS (5)
  - APHONIA [None]
  - ASTHMA [None]
  - BRONCHITIS [None]
  - GLOSSODYNIA [None]
  - ORAL PAIN [None]
